FAERS Safety Report 14572415 (Version 1)
Quarter: 2018Q1

REPORT INFORMATION
  Report Type: Spontaneous
  Country: US (occurrence: US)
  Receive Date: 20180221
  Receipt Date: 20180221
  Transmission Date: 20180509
  Serious: Yes (Hospitalization)
  Sender: FDA-Public Use
  Company Number: None

PATIENT
  Sex: Female

DRUGS (22)
  1. BUDESONIDE. [Concomitant]
     Active Substance: BUDESONIDE
  2. UREA. [Concomitant]
     Active Substance: UREA
  3. TRAZODONE [Concomitant]
     Active Substance: TRAZODONE HYDROCHLORIDE
  4. XANAX [Concomitant]
     Active Substance: ALPRAZOLAM
  5. LEVAQUIN [Concomitant]
     Active Substance: LEVOFLOXACIN
  6. PREDNISONE. [Concomitant]
     Active Substance: PREDNISONE
  7. AMOX/CLAV [Concomitant]
     Active Substance: AMOXICILLIN\CLAVULANATE POTASSIUM
  8. CITRUCEL [Concomitant]
     Active Substance: METHYLCELLULOSE (4000 MPA.S)
  9. SYMBICORT [Concomitant]
     Active Substance: BUDESONIDE\FORMOTEROL FUMARATE DIHYDRATE
  10. ALBUTEROL. [Concomitant]
     Active Substance: ALBUTEROL
  11. MUCINEX [Concomitant]
     Active Substance: GUAIFENESIN
  12. PROBIOTIC [Concomitant]
     Active Substance: PROBIOTICS NOS
  13. XGEVA [Concomitant]
     Active Substance: DENOSUMAB
  14. CAPECITABINE. [Suspect]
     Active Substance: CAPECITABINE
     Indication: NEOPLASM MALIGNANT
     Route: 048
     Dates: start: 20170531
  15. ACYCLOVIR. [Concomitant]
     Active Substance: ACYCLOVIR
  16. MIRALAX [Concomitant]
     Active Substance: POLYETHYLENE GLYCOL 3350
  17. MULTIVITAMIN [Concomitant]
     Active Substance: VITAMINS
  18. CALCIUM [Concomitant]
     Active Substance: CALCIUM
  19. FLUTICASONE. [Concomitant]
     Active Substance: FLUTICASONE
  20. OXYCODONE [Concomitant]
     Active Substance: OXYCODONE
  21. VENLAFAXINE [Concomitant]
     Active Substance: VENLAFAXINE HYDROCHLORIDE
  22. VITAMIND [Concomitant]

REACTIONS (2)
  - Pneumonia [None]
  - Influenza [None]
